FAERS Safety Report 4685339-7 (Version None)
Quarter: 2005Q2

REPORT INFORMATION
  Report Type: 
  Country: None (occurrence: None)
  Receive Date: 20050608
  Receipt Date: 20050527
  Transmission Date: 20051028
  Serious: Yes (Hospitalization)
  Sender: FDA-Public Use
  Company Number: JP-ROCHE-405896

PATIENT
  Age: 64 Year
  Sex: Male

DRUGS (1)
  1. NICARDIPINE HCL [Suspect]
     Indication: DRUG USE FOR UNKNOWN INDICATION
     Route: 041
     Dates: start: 20040306

REACTIONS (2)
  - CEREBRAL INFARCTION [None]
  - CONVULSION [None]
